FAERS Safety Report 10713259 (Version 1)
Quarter: 2015Q1

REPORT INFORMATION
  Report Type: Spontaneous
  Country: US (occurrence: None)
  Receive Date: 20150114
  Receipt Date: 20150114
  Transmission Date: 20150721
  Serious: Yes (Other)
  Sender: FDA-Public Use
  Company Number: None

PATIENT
  Age: 48 Year
  Sex: Female

DRUGS (1)
  1. MIRVASO [Suspect]
     Active Substance: BRIMONIDINE TARTRATE

REACTIONS (6)
  - Dry skin [None]
  - Skin exfoliation [None]
  - Burning sensation [None]
  - Economic problem [None]
  - Drug ineffective [None]
  - Erythema [None]
